FAERS Safety Report 14808876 (Version 2)
Quarter: 2018Q2

REPORT INFORMATION
  Report Type: Report from Study
  Country: JP (occurrence: JP)
  Receive Date: 20180425
  Receipt Date: 20180529
  Transmission Date: 20180711
  Serious: Yes (Hospitalization, Other)
  Sender: FDA-Public Use
  Company Number: JP-PFIZER INC-2016113050

PATIENT
  Age: 70 Year
  Sex: Male

DRUGS (4)
  1. TOFACITINIB CITRATE [Suspect]
     Active Substance: TOFACITINIB CITRATE
     Dosage: 5 MG, 2X/DAY
     Route: 048
     Dates: start: 20150115
  2. AZULFIDINE [Concomitant]
     Active Substance: SULFASALAZINE
     Dosage: UNK
     Route: 048
  3. RIMATIL [Concomitant]
     Active Substance: BUCILLAMINE
     Dosage: UNK
     Route: 048
  4. KOLBET [Concomitant]
     Active Substance: IGURATIMOD
     Dosage: UNK
     Route: 048

REACTIONS (3)
  - Cerebrovascular accident [Unknown]
  - Fall [Recovered/Resolved]
  - Spinal cord injury cervical [Recovered/Resolved]

NARRATIVE: CASE EVENT DATE: 20150822
